FAERS Safety Report 6330175-9 (Version None)
Quarter: 2009Q3

REPORT INFORMATION
  Report Type: 
  Country: None (occurrence: None)
  Receive Date: 20090827
  Receipt Date: 20070926
  Transmission Date: 20100115
  Serious: Yes (Hospitalization)
  Sender: FDA-Public Use
  Company Number: US-ASTRAZENECA-2006UW23097

PATIENT
  Age: 41 Year
  Sex: Female
  Weight: 107.5 kg

DRUGS (13)
  1. SEROQUEL [Suspect]
     Indication: SLEEP DISORDER
     Dosage: 100 MG - 400 MG DAILY
     Route: 048
     Dates: start: 20020604
  2. SEROQUEL [Suspect]
     Route: 048
     Dates: start: 20030101, end: 20050101
  3. RISPERDAL [Concomitant]
     Dates: start: 20000101
  4. RISPERDAL [Concomitant]
     Dosage: 2 MG - 3 MG AT NIGHT
     Dates: start: 20020604
  5. EFFEXOR XR [Concomitant]
     Dosage: STRENGTH 225 MG, 300 MG.  DOSE 225 MG - 600 MG
     Dates: start: 20020307
  6. KLONOPIN [Concomitant]
  7. LORTAB [Concomitant]
     Dosage: 5/500 MG THREE TIMES A DAY
     Dates: start: 20060221
  8. PROVIGIL [Concomitant]
     Dates: start: 20060907
  9. ENABLEX [Concomitant]
     Dates: start: 20060907
  10. LEXAPRO [Concomitant]
     Dosage: STRENGTH- 20 MG.  DOSE- 20 MG - 40 MG DAILY
     Dates: start: 20050308
  11. SERZONE [Concomitant]
     Dosage: 200 MG - 300 MG AT NIGHT
     Route: 048
     Dates: start: 20020307
  12. ADVAIR HFA [Concomitant]
     Dosage: 250/50 TWO TIMES A DAY AS REQUIRED
     Dates: start: 20020307
  13. TOPAMAX [Concomitant]
     Dates: start: 20020916

REACTIONS (3)
  - APPENDICITIS [None]
  - DIABETES MELLITUS [None]
  - TYPE 2 DIABETES MELLITUS [None]
